FAERS Safety Report 10198837 (Version 2)
Quarter: 2014Q2

REPORT INFORMATION
  Report Type: Spontaneous
  Country: TH (occurrence: TH)
  Receive Date: 20140527
  Receipt Date: 20140606
  Transmission Date: 20141212
  Serious: Yes (Death, Other)
  Sender: FDA-Public Use
  Company Number: TH-BAXTER-2014BAX025978

PATIENT
  Sex: Female

DRUGS (1)
  1. DIANEAL LOW CALCIUM (2.5 PERCENT MEQ/L) PERITONEAL DIALYSIS SOL WITH 1 [Suspect]
     Indication: PERITONEAL DIALYSIS
     Route: 033
     Dates: start: 20140318, end: 20140506

REACTIONS (4)
  - Malnutrition [Fatal]
  - Bedridden [Unknown]
  - Diet refusal [Unknown]
  - Condition aggravated [Unknown]
